FAERS Safety Report 13225999 (Version 5)
Quarter: 2017Q2

REPORT INFORMATION
  Report Type: Report from Study
  Country: US (occurrence: US)
  Receive Date: 20170213
  Receipt Date: 20170426
  Transmission Date: 20170830
  Serious: Yes (Hospitalization, Other)
  Sender: FDA-Public Use
  Company Number: US-009507513-1702USA002999

PATIENT
  Age: 39 Year
  Sex: Female

DRUGS (3)
  1. PEMBROLIZUMAB. [Suspect]
     Active Substance: PEMBROLIZUMAB
     Dosage: UNK
     Route: 042
     Dates: start: 20170208, end: 20170208
  2. PEMBROLIZUMAB. [Suspect]
     Active Substance: PEMBROLIZUMAB
     Indication: MALIGNANT MELANOMA
     Dosage: UNK, Q3W
     Route: 042
     Dates: start: 2015
  3. PEMBROLIZUMAB. [Suspect]
     Active Substance: PEMBROLIZUMAB
     Dosage: UNK
     Route: 042
     Dates: start: 20170228

REACTIONS (15)
  - Sleep disorder [Unknown]
  - Adverse event [Unknown]
  - Stress [Unknown]
  - Herpes zoster [Unknown]
  - Decreased appetite [Unknown]
  - Renal disorder [Unknown]
  - Inappropriate schedule of drug administration [Unknown]
  - Malignant melanoma [Unknown]
  - Headache [Recovering/Resolving]
  - Appetite disorder [Unknown]
  - Ear pain [Recovering/Resolving]
  - Discomfort [Unknown]
  - Weight decreased [Unknown]
  - Fatigue [Unknown]
  - Fatigue [Recovered/Resolved]

NARRATIVE: CASE EVENT DATE: 20131225
